FAERS Safety Report 18382623 (Version 1)
Quarter: 2020Q4

REPORT INFORMATION
  Report Type: Spontaneous
  Country: US (occurrence: US)
  Receive Date: 20201014
  Receipt Date: 20201014
  Transmission Date: 20210114
  Serious: No
  Sender: FDA-Public Use
  Company Number: US-ELI_LILLY_AND_COMPANY-US202007010757

PATIENT
  Sex: Female

DRUGS (1)
  1. TRULICITY [Suspect]
     Active Substance: DULAGLUTIDE
     Indication: PRODUCT USED FOR UNKNOWN INDICATION
     Dosage: UNK UNK, UNKNOWN
     Route: 065

REACTIONS (5)
  - Rheumatoid arthritis [Recovering/Resolving]
  - Alopecia [Recovering/Resolving]
  - Blood glucose abnormal [Recovered/Resolved]
  - Migraine [Recovering/Resolving]
  - Reproductive tract disorder [Recovering/Resolving]
